FAERS Safety Report 8482058 (Version 8)
Quarter: 2012Q4

REPORT INFORMATION
  Report Type: 
  Country: AR (occurrence: AR)
  Receive Date: 20120329
  Receipt Date: 20121005
  Transmission Date: 20130627
  Serious: Yes (Hospitalization)
  Sender: FDA-Public Use
  Company Number: AR-GENZYME-CERZ-1002452

PATIENT
  Sex: Male
  Weight: 61 kg

DRUGS (1)
  1. CEREZYME [Suspect]
     Indication: GAUCHER^S DISEASE
     Dosage: 34 U/kg, q2w
     Route: 042
     Dates: start: 1996

REACTIONS (4)
  - Ascites [Unknown]
  - Fistula [Unknown]
  - Volvulus [Unknown]
  - Sepsis [Unknown]
